FAERS Safety Report 16354683 (Version 3)
Quarter: 2019Q3

REPORT INFORMATION
  Report Type: Spontaneous
  Country: JP (occurrence: JP)
  Receive Date: 20190524
  Receipt Date: 20190927
  Transmission Date: 20191004
  Serious: Yes (Other)
  Sender: FDA-Public Use
  Company Number: JP-ASTRAZENECA-2019SE40223

PATIENT
  Age: 27125 Day
  Sex: Female

DRUGS (12)
  1. IBRANCE [Suspect]
     Active Substance: PALBOCICLIB
     Indication: BREAST CANCER FEMALE
     Dosage: 100 MG EVERY DAY, ORAL ADMINISTRATION FOR THREE WEEKS AND DRUG SUSPENSION FOR ONE WEEK
     Route: 048
     Dates: start: 20180918, end: 20181010
  2. DENOTAS [Concomitant]
     Active Substance: CALCIUM CARBONATE\CHOLECALCIFEROL\MAGNESIUM CARBONATE
     Indication: BREAST CANCER FEMALE
     Dosage: 2 DF
     Route: 048
     Dates: start: 20171207
  3. MAGMITT [Concomitant]
     Active Substance: MAGNESIUM OXIDE
     Indication: CONSTIPATION
     Route: 048
     Dates: start: 20171211
  4. OXYCODONE [Concomitant]
     Active Substance: OXYCODONE
     Indication: BREAST CANCER FEMALE
     Route: 048
     Dates: start: 20171207
  5. HERBAL NOS [Concomitant]
     Active Substance: HERBALS
     Indication: DECREASED APPETITE
     Route: 048
     Dates: start: 20180804
  6. FASLODEX [Suspect]
     Active Substance: FULVESTRANT
     Indication: BREAST CANCER FEMALE
     Route: 030
     Dates: start: 20171219, end: 20190426
  7. RANMARK [Concomitant]
     Active Substance: DENOSUMAB
     Indication: BREAST CANCER FEMALE
     Route: 058
     Dates: start: 20171207
  8. NIFEDIPINE. [Concomitant]
     Active Substance: NIFEDIPINE
     Indication: HYPERTENSION
     Route: 048
     Dates: start: 20171130
  9. IBRANCE [Suspect]
     Active Substance: PALBOCICLIB
     Indication: BREAST CANCER FEMALE
     Dosage: 75 MG EVERY DAY, ORAL ADMINISTRATION FOR THREE WEEKS AND DRUG SUSPENSION FOR ONE WEEK
     Route: 048
     Dates: start: 20181022, end: 20190426
  10. LANSOPRAZOLE. [Concomitant]
     Active Substance: LANSOPRAZOLE
     Indication: GASTROOESOPHAGEAL REFLUX DISEASE
     Route: 048
     Dates: start: 20171221
  11. ENSURE H [Concomitant]
     Indication: DECREASED APPETITE
     Dosage: 250 ML
     Route: 048
     Dates: start: 20180804
  12. AZUNOL [Concomitant]
     Indication: STOMATITIS
     Dosage: DOSE UNKNOWN
     Route: 065
     Dates: start: 20180914

REACTIONS (5)
  - Retinal artery embolism [Recovered/Resolved]
  - Neutrophil count decreased [Recovered/Resolved]
  - Malignant neoplasm progression [Unknown]
  - Metastases to bone [Unknown]
  - Visual field defect [Recovered/Resolved]

NARRATIVE: CASE EVENT DATE: 20181010
